FAERS Safety Report 8551096-7 (Version None)
Quarter: 2012Q3

REPORT INFORMATION
  Report Type: 
  Country: None (occurrence: None)
  Receive Date: 20120730
  Receipt Date: 20110823
  Transmission Date: 20120928
  Serious: No
  Sender: FDA-Public Use
  Company Number: US-ALLERGAN-1110769US

PATIENT
  Age: 59 Year
  Sex: Female

DRUGS (3)
  1. ANOTHER PRODUCT MAYBE RAPID LASH [Suspect]
     Indication: GROWTH OF EYELASHES
     Dosage: UNK
     Dates: start: 20110501, end: 20110701
  2. LATISSE [Suspect]
     Indication: GROWTH OF EYELASHES
     Dosage: 1 GTT, QHS
     Dates: start: 20110101, end: 20110501
  3. LATISSE [Suspect]
     Dosage: 1 GTT, UNK
     Route: 061
     Dates: start: 20110701

REACTIONS (3)
  - TRICHORRHEXIS [None]
  - MADAROSIS [None]
  - THERAPY CESSATION [None]
